FAERS Safety Report 8047587-8 (Version None)
Quarter: 2012Q1

REPORT INFORMATION
  Report Type: 
  Country: None (occurrence: None)
  Receive Date: 20120116
  Receipt Date: 20120110
  Transmission Date: 20120608
  Serious: Yes (Hospitalization)
  Sender: FDA-Public Use
  Company Number: US-GLAXOSMITHKLINE-A0960791A

PATIENT
  Age: 66 Year
  Sex: Female

DRUGS (9)
  1. ADVAIR DISKUS 100/50 [Suspect]
     Indication: CHRONIC OBSTRUCTIVE PULMONARY DISEASE
     Dosage: 1PUFF TWICE PER DAY
     Route: 055
     Dates: start: 20111001
  2. BLOOD PRESSURE MEDICATION [Concomitant]
  3. DIABETES MEDICATION [Concomitant]
  4. ACID REFLUX MED. [Concomitant]
  5. METFORMIN HCL [Concomitant]
  6. XOPENEX [Concomitant]
  7. OXYGEN [Concomitant]
  8. VENTOLIN [Concomitant]
  9. PREDNISONE [Concomitant]

REACTIONS (3)
  - DYSPNOEA [None]
  - PNEUMONIA [None]
  - CIRCULATORY COLLAPSE [None]
